FAERS Safety Report 4693675-3 (Version None)
Quarter: 2005Q2

REPORT INFORMATION
  Report Type: 
  Country: None (occurrence: None)
  Receive Date: 20050617
  Receipt Date: 20050607
  Transmission Date: 20051028
  Serious: Yes (Hospitalization)
  Sender: FDA-Public Use
  Company Number: 2005UW08788

PATIENT
  Age: 35 Year
  Sex: Female
  Weight: 63.5 kg

DRUGS (5)
  1. SEROQUEL [Suspect]
     Indication: BIPOLAR DISORDER
     Dosage: TITRATED TO 800 MG/DAY, THEN REDUCED TO 200MG/DAY
     Route: 048
     Dates: start: 20050424, end: 20050507
  2. NORVASC [Concomitant]
     Route: 048
  3. TOPROL-XL [Concomitant]
     Route: 048
  4. HYDROCHLOROTHIAZIDE [Concomitant]
     Route: 048
  5. XANAX [Concomitant]
     Route: 048

REACTIONS (7)
  - ABDOMINAL PAIN UPPER [None]
  - CONVULSION [None]
  - HEPATIC PAIN [None]
  - LIVER FUNCTION TEST ABNORMAL [None]
  - NAUSEA [None]
  - NEPHROLITHIASIS [None]
  - PYREXIA [None]
